FAERS Safety Report 20040443 (Version 1)
Quarter: 2021Q4

REPORT INFORMATION
  Report Type: Spontaneous
  Country: US (occurrence: None)
  Receive Date: 20211106
  Receipt Date: 20211106
  Transmission Date: 20220303
  Serious: Yes (Other)
  Sender: FDA-Public Use
  Company Number: None

PATIENT
  Age: 61 Year
  Sex: Female

DRUGS (1)
  1. VANCOMYCIN [Suspect]
     Active Substance: VANCOMYCIN
     Indication: Cystitis
     Dates: start: 20211027, end: 20211101

REACTIONS (17)
  - Pruritus [None]
  - Erythema [None]
  - Oropharyngeal pain [None]
  - Ulcer [None]
  - Feeling abnormal [None]
  - Lip disorder [None]
  - Oral disorder [None]
  - Skin fissures [None]
  - Urticaria [None]
  - Rash [None]
  - Swelling of eyelid [None]
  - Swelling face [None]
  - Lip swelling [None]
  - Swollen tongue [None]
  - Ocular hyperaemia [None]
  - Eye irritation [None]
  - Lip ulceration [None]

NARRATIVE: CASE EVENT DATE: 20211101
